FAERS Safety Report 4368056-2 (Version None)
Quarter: 2004Q2

REPORT INFORMATION
  Report Type: 
  Country: None (occurrence: None)
  Receive Date: 20040527
  Receipt Date: 20040210
  Transmission Date: 20050107
  Serious: No
  Sender: FDA-Public Use
  Company Number: 204637

PATIENT
  Age: 43 Year
  Sex: Male
  Weight: 88.4 kg

DRUGS (2)
  1. RAPTIVA [Suspect]
     Indication: PSORIASIS
     Dosage: 0.9 MG, 1/WEEK, SUBCUTANEOUS
     Route: 058
     Dates: start: 20031201
  2. LIBRIUM [Concomitant]

REACTIONS (3)
  - ALANINE AMINOTRANSFERASE DECREASED [None]
  - ASPARTATE AMINOTRANSFERASE INCREASED [None]
  - PLATELET COUNT DECREASED [None]
